FAERS Safety Report 12819226 (Version 1)
Quarter: 2016Q4

REPORT INFORMATION
  Report Type: Spontaneous
  Country: US (occurrence: US)
  Receive Date: 20161005
  Receipt Date: 20161005
  Transmission Date: 20170207
  Serious: Yes (Hospitalization)
  Sender: FDA-Public Use
  Company Number: None

PATIENT
  Age: 85 Year
  Sex: Male
  Weight: 82.4 kg

DRUGS (3)
  1. METOLAZONE. [Suspect]
     Active Substance: METOLAZONE
     Indication: CARDIAC FAILURE CONGESTIVE
     Dosage: 2.5MG AM PO
     Route: 048
     Dates: start: 20160505, end: 20160610
  2. METOLAZONE. [Suspect]
     Active Substance: METOLAZONE
     Indication: OEDEMA
     Dosage: 2.5MG AM PO
     Route: 048
     Dates: start: 20160505, end: 20160610
  3. SPIRONOLACTONE. [Suspect]
     Active Substance: SPIRONOLACTONE
     Indication: CARDIAC FAILURE CONGESTIVE
     Route: 048
     Dates: start: 20160505, end: 20160610

REACTIONS (5)
  - Polyuria [None]
  - Hypophagia [None]
  - Hyperkalaemia [None]
  - Acute kidney injury [None]
  - Cough [None]

NARRATIVE: CASE EVENT DATE: 20160610
